FAERS Safety Report 16088740 (Version 1)
Quarter: 2019Q1

REPORT INFORMATION
  Report Type: Spontaneous
  Country: US (occurrence: US)
  Receive Date: 20190319
  Receipt Date: 20190319
  Transmission Date: 20190418
  Serious: Yes (Hospitalization, Disabling, Other)
  Sender: FDA-Public Use
  Company Number: US-TEVA-2019-US-1025168

PATIENT
  Sex: Female
  Weight: 81.65 kg

DRUGS (12)
  1. PROMETHAZINE [Concomitant]
     Active Substance: PROMETHAZINE\PROMETHAZINE HYDROCHLORIDE
     Dosage: 50 MILLIGRAM DAILY;
     Route: 048
  2. PREGABALINS [Concomitant]
  3. HYDROCODONE APAP 10/325 [Concomitant]
  4. VALIUM [Concomitant]
     Active Substance: DIAZEPAM
  5. MEPERIDINE HYDROCHLORIDE. [Suspect]
     Active Substance: MEPERIDINE HYDROCHLORIDE
     Indication: MIGRAINE
     Dosage: 100 MILLIGRAM DAILY;
     Route: 048
     Dates: start: 1997, end: 2018
  6. CALCIUM [Concomitant]
     Active Substance: CALCIUM
  7. MAGNESIUM [Concomitant]
     Active Substance: MAGNESIUM
  8. TIZANIDINE. [Concomitant]
     Active Substance: TIZANIDINE
  9. ZINC. [Concomitant]
     Active Substance: ZINC
  10. LYRICA [Concomitant]
     Active Substance: PREGABALIN
  11. REQUIP [Concomitant]
     Active Substance: ROPINIROLE HYDROCHLORIDE
  12. VITAMIN D [Concomitant]
     Active Substance: CHOLECALCIFEROL

REACTIONS (19)
  - Bile duct obstruction [Unknown]
  - Fluid retention [Unknown]
  - Jaundice [Unknown]
  - Thirst [Unknown]
  - Drug ineffective [Unknown]
  - Amnesia [Unknown]
  - Abnormal behaviour [Unknown]
  - Hepatitis [Unknown]
  - Drug screen positive [Unknown]
  - Migraine [Unknown]
  - Rotator cuff syndrome [Unknown]
  - Bile duct stone [Unknown]
  - Spinal cord injury cervical [Unknown]
  - Plantar fasciitis [Unknown]
  - Hangover [Unknown]
  - Movement disorder [Unknown]
  - Drug tolerance [Unknown]
  - Neck injury [Unknown]
  - Back injury [Unknown]
